FAERS Safety Report 11458156 (Version 2)
Quarter: 2015Q3

REPORT INFORMATION
  Report Type: Spontaneous
  Country: US (occurrence: US)
  Receive Date: 20150904
  Receipt Date: 20150924
  Transmission Date: 20151125
  Serious: Yes (Other)
  Sender: FDA-Public Use
  Company Number: US-ELI_LILLY_AND_COMPANY-US201508009058

PATIENT
  Age: 78 Year
  Sex: Male
  Weight: 115.19 kg

DRUGS (2)
  1. EFFIENT [Suspect]
     Active Substance: PRASUGREL HYDROCHLORIDE
     Indication: PERCUTANEOUS CORONARY INTERVENTION
     Dosage: 60 MG, SINGLE
     Route: 048
     Dates: start: 20150827, end: 20150827
  2. ASA [Suspect]
     Active Substance: ASPIRIN
     Dosage: 81 MG, UNKNOWN
     Route: 065

REACTIONS (1)
  - Epistaxis [Recovered/Resolved]
